FAERS Safety Report 19226138 (Version 2)
Quarter: 2022Q2

REPORT INFORMATION
  Report Type: Other
  Country: US (occurrence: None)
  Receive Date: 20210505
  Receipt Date: 20220419
  Transmission Date: 20220721
  Serious: No
  Sender: FDA-Public Use
  Company Number: US-ROCHE-2738885

PATIENT
  Age: 67 Year
  Sex: Female

DRUGS (5)
  1. BEVACIZUMAB [Suspect]
     Active Substance: BEVACIZUMAB
     Indication: Hereditary haemorrhagic telangiectasia
     Dosage: 6 INFUSIONS OVER 3 MONTHS
     Route: 065
  2. BEVACIZUMAB [Suspect]
     Active Substance: BEVACIZUMAB
     Route: 065
  3. TRANEXAMIC ACID [Concomitant]
     Active Substance: TRANEXAMIC ACID
  4. AMINOCAPROIC ACID [Concomitant]
     Active Substance: AMINOCAPROIC ACID
  5. HUMAN RED BLOOD CELL [Concomitant]
     Active Substance: HUMAN RED BLOOD CELL

REACTIONS (4)
  - Hypertension [Unknown]
  - Arthralgia [Unknown]
  - Oedema peripheral [Unknown]
  - Off label use [Unknown]
